FAERS Safety Report 8042506-2 (Version None)
Quarter: 2012Q1

REPORT INFORMATION
  Report Type: 
  Country: None (occurrence: None)
  Receive Date: 20120112
  Receipt Date: 20120110
  Transmission Date: 20120608
  Serious: No
  Sender: FDA-Public Use
  Company Number: US-PFIZER INC-2012007708

PATIENT
  Sex: Male
  Weight: 86.168 kg

DRUGS (4)
  1. CELEBREX [Suspect]
     Indication: ARTHRALGIA
     Dosage: 200 MG, 1X/DAY
     Route: 048
  2. CELEBREX [Suspect]
     Indication: OSTEOARTHRITIS
  3. COSAMIN DS [Concomitant]
     Dosage: UNK
  4. VITAMIN C [Suspect]
     Indication: VITAMIN C DECREASED
     Dosage: 2000 MG, UNK
     Dates: start: 20111101

REACTIONS (14)
  - VITAMIN D DECREASED [None]
  - ONYCHOMADESIS [None]
  - TREMOR [None]
  - NAIL INJURY [None]
  - BLOOD IRON INCREASED [None]
  - SERUM FERRITIN INCREASED [None]
  - GAIT DISTURBANCE [None]
  - VITAMIN C DECREASED [None]
  - BODY HEIGHT DECREASED [None]
  - ASTHENIA [None]
  - PYREXIA [None]
  - MALAISE [None]
  - PARANOIA [None]
  - HYPOTHYROIDISM [None]
